FAERS Safety Report 23356185 (Version 1)
Quarter: 2024Q1

REPORT INFORMATION
  Report Type: Spontaneous
  Country: FR (occurrence: FR)
  Receive Date: 20240102
  Receipt Date: 20240102
  Transmission Date: 20240410
  Serious: Yes (Hospitalization, Other)
  Sender: FDA-Public Use
  Company Number: FR-ROCHE-3475640

PATIENT
  Age: 30 Year
  Sex: Male

DRUGS (13)
  1. TRANXENE [Suspect]
     Active Substance: CLORAZEPATE DIPOTASSIUM
     Indication: Product used for unknown indication
     Dosage: 30 MG, TID(FREQUENCY: TID, PLASMA PEAK 1H, THEREFORE MORE ADDICTIVE)
  2. ZOLPIDEM TARTRATE [Suspect]
     Active Substance: ZOLPIDEM TARTRATE
     Indication: Product used for unknown indication
     Dosage: 10 MG, QD
     Dates: start: 2023
  3. METHADONE [Suspect]
     Active Substance: METHADONE HYDROCHLORIDE
     Indication: Pain
     Dosage: 60 MG, QD
     Dates: start: 2023
  4. BROMAZEPAM [Suspect]
     Active Substance: BROMAZEPAM
     Indication: Product used for unknown indication
     Dosage: 3 MG, QD
     Dates: start: 2023
  5. COCAINE [Suspect]
     Active Substance: COCAINE
     Indication: Product used for unknown indication
     Dosage: 1 G, Q5D((18 YRS)- ONGOING, IV OR SNORTED, 1G/D 5 (RELATED CASES: AV-MPL 23-584, ENDOCARDITIS, SEVER
     Dates: start: 2011
  6. XANAX [Suspect]
     Active Substance: ALPRAZOLAM
     Indication: Product used for unknown indication
     Dosage: 2 MG, QD
     Dates: start: 2023
  7. CANNABIS SATIVA SUBSP. INDICA TOP [Suspect]
     Active Substance: CANNABIS SATIVA SUBSP. INDICA TOP
     Indication: Product used for unknown indication
     Dosage: UNK
     Dates: start: 2011
  8. VALIUM [Suspect]
     Active Substance: DIAZEPAM
     Indication: Anxiety
     Dosage: 10 MG, QD(FREQUENCY: MORNING, NOON AND EVENING, THEN INCREASE TO 6X/DAY)
     Dates: start: 2023
  9. VALIUM [Suspect]
     Active Substance: DIAZEPAM
     Dosage: UNK, QD(DIAZEPAM 60 MG/DAY DIVIDED INTO 6 DOSES: INEFFECTIVE ACCORDING TO THE PATIENT ON HIS ANXIETY
  10. METHYLPHENIDATE HYDROCHLORIDE [Suspect]
     Active Substance: METHYLPHENIDATE HYDROCHLORIDE
     Indication: Product used for unknown indication
     Dosage: 40 MG, TID
  11. METHYLPHENIDATE HYDROCHLORIDE [Suspect]
     Active Substance: METHYLPHENIDATE HYDROCHLORIDE
     Dosage: 30 MG, QD
     Dates: start: 2023
  12. ZYPREXA [Suspect]
     Active Substance: OLANZAPINE
     Indication: Pain
     Dosage: UNK
  13. PRAZEPAM [Suspect]
     Active Substance: PRAZEPAM
     Indication: Product used for unknown indication
     Dosage: 10 MG, TID(PLASMA PEAK 4-6H, 10-10-10)

REACTIONS (2)
  - Endocarditis [Unknown]
  - Drug use disorder [Unknown]

NARRATIVE: CASE EVENT DATE: 20230101
